FAERS Safety Report 12270791 (Version 1)
Quarter: 2016Q2

REPORT INFORMATION
  Report Type: Spontaneous
  Country: AR (occurrence: AR)
  Receive Date: 20160415
  Receipt Date: 20160415
  Transmission Date: 20160815
  Serious: Yes (Hospitalization, Other)
  Sender: FDA-Public Use
  Company Number: AR-AMGEN-ARGSP2016044242

PATIENT
  Age: 21 Year
  Sex: Female

DRUGS (8)
  1. PROCORALAN [Suspect]
     Active Substance: IVABRADINE
     Dosage: 15 MG, DAILY
     Route: 048
     Dates: start: 2013, end: 2013
  2. PROCORALAN [Suspect]
     Active Substance: IVABRADINE
     Indication: CONGESTIVE CARDIOMYOPATHY
     Dosage: 5 MG, DAILY
     Route: 048
     Dates: start: 201306, end: 2013
  3. BISOPROLOL [Concomitant]
     Active Substance: BISOPROLOL
     Dosage: UNK
     Dates: start: 201304
  4. SPIRONOLACTONE. [Concomitant]
     Active Substance: SPIRONOLACTONE
     Dosage: 25 MG, DAILY
     Dates: start: 201304
  5. FUROSEMIDE. [Concomitant]
     Active Substance: FUROSEMIDE
     Dosage: 40 MG, DAILY
     Dates: start: 201304
  6. PROCORALAN [Suspect]
     Active Substance: IVABRADINE
     Dosage: 20 MG, DAILY
     Route: 048
     Dates: start: 2013
  7. LOSARTAN. [Concomitant]
     Active Substance: LOSARTAN
     Dosage: 25 MG, DAILY
     Dates: start: 2013
  8. PROCORALAN [Suspect]
     Active Substance: IVABRADINE
     Dosage: 10 MG, DAILY
     Route: 048
     Dates: start: 2013, end: 2013

REACTIONS (5)
  - Exposure during pregnancy [Recovered/Resolved]
  - First trimester pregnancy [Recovered/Resolved]
  - Abortion spontaneous [Recovered/Resolved]
  - Prescribed overdose [Recovered/Resolved]
  - Hypertension [Recovered/Resolved]
